FAERS Safety Report 20312532 (Version 2)
Quarter: 2022Q1

REPORT INFORMATION
  Report Type: Spontaneous
  Country: JP (occurrence: JP)
  Receive Date: 20220110
  Receipt Date: 20220307
  Transmission Date: 20220423
  Serious: No
  Sender: FDA-Public Use
  Company Number: JP-PFIZER INC-202101772833

PATIENT
  Sex: Male

DRUGS (1)
  1. GENOTROPIN [Suspect]
     Active Substance: SOMATROPIN
     Dosage: 1.2 MG
     Route: 058

REACTIONS (4)
  - Device use error [Unknown]
  - Device breakage [Unknown]
  - Poor quality device used [Unknown]
  - Drug dose omission by device [Unknown]
